FAERS Safety Report 9096981 (Version 1)
Quarter: 2013Q1

REPORT INFORMATION
  Report Type: Spontaneous
  Country: US (occurrence: None)
  Receive Date: 20130124
  Receipt Date: 20130124
  Transmission Date: 20140127
  Serious: Yes (Hospitalization)
  Sender: FDA-Public Use
  Company Number: 2013-000207

PATIENT
  Age: 78 Year
  Sex: Male

DRUGS (5)
  1. ASACOL [Suspect]
     Route: 048
     Dates: start: 201209, end: 201211
  2. LASIX /00032601/ (FUROSEMIDE) [Concomitant]
  3. ATACAND (CANDESARTAN CILEXETIL) [Concomitant]
  4. LANOXIN (DIGOXIN) [Concomitant]
  5. BABY ASPIRIN (ACETYLSALICYLIC ACID) [Concomitant]

REACTIONS (5)
  - Clostridium difficile infection [None]
  - Diarrhoea [None]
  - Abdominal pain upper [None]
  - Abdominal pain [None]
  - Economic problem [None]
